FAERS Safety Report 8604841 (Version 2)
Quarter: 2013Q3

REPORT INFORMATION
  Report Type: Report from Study
  Country: NL (occurrence: NL)
  Receive Date: 20120608
  Receipt Date: 20130722
  Transmission Date: 20140515
  Serious: Yes (Other)
  Sender: FDA-Public Use
  Company Number: NL-ELI_LILLY_AND_COMPANY-NL201205010600

PATIENT
  Age: 70 Year
  Sex: Female
  Weight: 70 kg

DRUGS (4)
  1. TERIPARATIDE [Suspect]
     Indication: OSTEOPOROSIS
     Dosage: 20 UG, QD
     Route: 058
     Dates: start: 20120524
  2. FLECAINIDE [Concomitant]
     Indication: ARRHYTHMIA
     Dosage: 100 MG, BID
     Route: 048
     Dates: start: 2002
  3. CLONAZEPAM [Concomitant]
     Indication: RESTLESS LEGS SYNDROME
     Dosage: UNK UNK, QD
     Route: 048
     Dates: start: 201204
  4. CALCI CHEW D3 [Concomitant]
     Indication: OSTEOPOROSIS
     Dosage: UNK, QD
     Route: 048
     Dates: start: 201204

REACTIONS (6)
  - Arrhythmia [Recovered/Resolved]
  - Palpitations [Recovered/Resolved]
  - Restless legs syndrome [Recovered/Resolved]
  - Drug dose omission [Unknown]
  - Weight increased [Unknown]
  - Dizziness [Unknown]
